FAERS Safety Report 4520746-4 (Version None)
Quarter: 2004Q4

REPORT INFORMATION
  Report Type: 
  Country: None (occurrence: None)
  Receive Date: 20041203
  Receipt Date: 20041022
  Transmission Date: 20050328
  Serious: Yes (Hospitalization)
  Sender: FDA-Public Use
  Company Number: STA-AE-04-MTX-513

PATIENT
  Age: 59 Year
  Sex: Male

DRUGS (8)
  1. RHEUMATREX [Suspect]
     Indication: RHEUMATOID ARTHRITIS
     Dosage: 5 MG PER WEEK, ORAL
     Route: 048
     Dates: start: 20030813, end: 20031007
  2. RHEUMATREX [Suspect]
     Indication: RHEUMATOID ARTHRITIS
     Dosage: 6 MG PER WEEK, ORAL
     Route: 048
     Dates: start: 20030308, end: 20040401
  3. RHEUMATREX [Suspect]
     Indication: RHEUMATOID ARTHRITIS
     Dosage: 6 MG PER WEEK, ORAL
     Route: 048
     Dates: start: 20040507
  4. REMICADE [Suspect]
     Indication: RHEUMATOID ARTHRITIS
  5. PREDNISOLONE [Concomitant]
  6. SOLETON (ZALTOPROFEN) [Concomitant]
  7. SELBEX (TEPRENONE) [Concomitant]
  8. ALFAROL (ALFACALCIDOL) [Concomitant]

REACTIONS (6)
  - ABDOMINAL PAIN [None]
  - ABSCESS INTESTINAL [None]
  - MALAISE [None]
  - NASOPHARYNGITIS [None]
  - PYREXIA [None]
  - RETROPERITONEAL ABSCESS [None]
